FAERS Safety Report 22238898 (Version 1)
Quarter: 2023Q2

REPORT INFORMATION
  Report Type: Report from Study
  Country: US (occurrence: None)
  Receive Date: 20230421
  Receipt Date: 20230421
  Transmission Date: 20230721
  Serious: Yes (Other)
  Sender: FDA-Public Use
  Company Number: 2023A092405

PATIENT
  Sex: Female

DRUGS (2)
  1. LYNPARZA [Suspect]
     Active Substance: OLAPARIB
     Indication: Malignant ascites
     Route: 048
     Dates: start: 202212
  2. LYNPARZA [Suspect]
     Active Substance: OLAPARIB
     Indication: Agranulocytosis
     Route: 048
     Dates: start: 202212

REACTIONS (3)
  - Wrist fracture [Unknown]
  - Off label use [Unknown]
  - Underdose [Unknown]
